FAERS Safety Report 13824268 (Version 1)
Quarter: 2017Q3

REPORT INFORMATION
  Report Type: Spontaneous
  Country: US (occurrence: US)
  Receive Date: 20170802
  Receipt Date: 20170802
  Transmission Date: 20171127
  Serious: Yes (Death, Other)
  Sender: FDA-Public Use
  Company Number: US-LUPIN PHARMACEUTICALS INC.-2017-04184

PATIENT
  Sex: Male
  Weight: 3.5 kg

DRUGS (1)
  1. MORPHINE [Suspect]
     Active Substance: MORPHINE
     Indication: PAIN MANAGEMENT
     Dosage: UNK
     Route: 065

REACTIONS (6)
  - Hypotension [Fatal]
  - General physical health deterioration [Fatal]
  - Condition aggravated [Fatal]
  - Coagulopathy [Fatal]
  - Neonatal respiratory distress syndrome [Fatal]
  - Pulmonary hypertension [Fatal]
